FAERS Safety Report 9216690 (Version 1)
Quarter: 2013Q1

REPORT INFORMATION
  Report Type: Spontaneous
  Country: US (occurrence: None)
  Receive Date: 20130220
  Receipt Date: 20130220
  Transmission Date: 20140127
  Serious: Yes (Other)
  Sender: FDA-Public Use
  Company Number: GR 13-003

PATIENT
  Sex: Female

DRUGS (1)
  1. ALLERGENIC EXTRACTS [Suspect]

REACTIONS (2)
  - Anaphylactic reaction [None]
  - No reaction on previous exposure to drug [None]
